FAERS Safety Report 4264462-5 (Version None)
Quarter: 2004Q1

REPORT INFORMATION
  Report Type: 
  Country: None (occurrence: None)
  Receive Date: 20040106
  Receipt Date: 20040106
  Transmission Date: 20041129
  Serious: Yes (Other)
  Sender: FDA-Public Use
  Company Number: None

PATIENT
  Age: 38 Year
  Sex: Female

DRUGS (1)
  1. TEQUIN [Suspect]
     Indication: PROPHYLAXIS
     Dosage: 400 MG X 1 INTRAVENOUS
     Route: 042
     Dates: start: 20031212, end: 20031212

REACTIONS (3)
  - CHEST PAIN [None]
  - ERYTHEMA [None]
  - PRURITUS [None]
